FAERS Safety Report 17782989 (Version 1)
Quarter: 2020Q2

REPORT INFORMATION
  Report Type: Spontaneous
  Country: JP (occurrence: JP)
  Receive Date: 20200514
  Receipt Date: 20200514
  Transmission Date: 20200714
  Serious: Yes (Hospitalization, Other)
  Sender: FDA-Public Use
  Company Number: JP-PFIZER INC-2020190614

PATIENT
  Age: 45 Year
  Sex: Female

DRUGS (4)
  1. ALPRAZOLAM. [Suspect]
     Active Substance: ALPRAZOLAM
     Indication: ANXIETY
     Dosage: UNK
  2. FLUNITRAZEPAM [Suspect]
     Active Substance: FLUNITRAZEPAM
     Indication: SEDATIVE THERAPY
     Dosage: UNK
  3. ETIZOLAM [Suspect]
     Active Substance: ETIZOLAM
     Indication: ANXIETY
     Dosage: UNK
  4. TRIAZOLAM. [Suspect]
     Active Substance: TRIAZOLAM
     Indication: SEDATIVE THERAPY
     Dosage: UNK

REACTIONS (4)
  - Suicide attempt [Unknown]
  - Drug dependence [Recovering/Resolving]
  - Overdose [Unknown]
  - Drug abuse [Unknown]
